FAERS Safety Report 9122920 (Version 1)
Quarter: 2013Q1

REPORT INFORMATION
  Report Type: Spontaneous
  Country: US (occurrence: US)
  Receive Date: 20130227
  Receipt Date: 20130227
  Transmission Date: 20140127
  Serious: No
  Sender: FDA-Public Use
  Company Number: US-GLAXOSMITHKLINE-A0986974A

PATIENT
  Age: 72 Year
  Sex: Male

DRUGS (6)
  1. VALTREX [Suspect]
     Indication: HERPES ZOSTER
     Dosage: 1G THREE TIMES PER DAY
     Route: 048
     Dates: start: 20120722, end: 20120724
  2. LANTUS [Concomitant]
  3. LOPRESSOR [Concomitant]
  4. UNKNOWN MEDICATION [Concomitant]
  5. SIMVASTATIN [Concomitant]
  6. VICODIN [Concomitant]

REACTIONS (5)
  - Nausea [Not Recovered/Not Resolved]
  - Chills [Unknown]
  - Dizziness [Unknown]
  - Asthenia [Unknown]
  - Decreased appetite [Unknown]
